FAERS Safety Report 5664567-8 (Version None)
Quarter: 2008Q1

REPORT INFORMATION
  Report Type: 
  Country: None (occurrence: None)
  Receive Date: 20080314
  Receipt Date: 20080306
  Transmission Date: 20080703
  Serious: No
  Sender: FDA-Public Use
  Company Number: FR-JNJFOC-20080104455

PATIENT
  Sex: Female
  Weight: 49 kg

DRUGS (3)
  1. EPITOMAX [Suspect]
     Route: 048
  2. EPITOMAX [Suspect]
     Indication: MIGRAINE PROPHYLAXIS
     Route: 048
  3. ADVIL [Concomitant]
     Indication: MIGRAINE
     Dosage: 1 TO 4 TIMES ONCE A MONTH IF NEEDED
     Route: 048

REACTIONS (1)
  - PARAESTHESIA [None]
